FAERS Safety Report 7927347-6 (Version None)
Quarter: 2011Q4

REPORT INFORMATION
  Report Type: 
  Country: None (occurrence: None)
  Receive Date: 20111118
  Receipt Date: 20111111
  Transmission Date: 20120403
  Serious: Yes (Life-Threatening, Hospitalization)
  Sender: FDA-Public Use
  Company Number: FR-ROXANE LABORATORIES, INC.-2011-RO-01639RO

PATIENT
  Age: 64 Year
  Sex: Female

DRUGS (3)
  1. ROPINIROLE [Suspect]
     Dosage: 8 MG
  2. ROPINIROLE [Suspect]
     Indication: PARKINSONISM
     Dosage: 6 MG
  3. FLUINDIONE [Suspect]
     Indication: ANTICOAGULANT THERAPY
     Route: 048

REACTIONS (2)
  - DRUG INTERACTION [None]
  - HAEMORRHAGE INTRACRANIAL [None]
